FAERS Safety Report 4991881-1 (Version None)
Quarter: 2006Q2

REPORT INFORMATION
  Report Type: 
  Country: None (occurrence: None)
  Receive Date: 20060504
  Receipt Date: 20050712
  Transmission Date: 20061013
  Serious: Yes (Hospitalization)
  Sender: FDA-Public Use
  Company Number: US-MERCK-0507USA01603

PATIENT
  Age: 41 Year
  Sex: Female
  Weight: 52 kg

DRUGS (2)
  1. VIOXX [Suspect]
     Indication: RHEUMATOID ARTHRITIS
     Route: 048
     Dates: start: 20020930, end: 20040212
  2. VIOXX [Suspect]
     Route: 048
     Dates: start: 20020930, end: 20040212

REACTIONS (10)
  - AORTIC VALVE REPLACEMENT [None]
  - CARDIAC DISORDER [None]
  - CHEST PAIN [None]
  - DYSPNOEA [None]
  - HEART INJURY [None]
  - HYSTERECTOMY [None]
  - KNEE ARTHROPLASTY [None]
  - LIFE EXPECTANCY SHORTENED [None]
  - PALPITATIONS [None]
  - STOMATITIS [None]
